FAERS Safety Report 4804068-X (Version None)
Quarter: 2005Q4

REPORT INFORMATION
  Report Type: 
  Country: None (occurrence: None)
  Receive Date: 20051014
  Receipt Date: 20051005
  Transmission Date: 20060501
  Serious: Yes (Other)
  Sender: FDA-Public Use
  Company Number: 2005098639

PATIENT
  Age: 60 Year
  Sex: Male

DRUGS (2)
  1. BEXTRA [Suspect]
     Indication: CONTUSION
     Dosage: 20 MG (20 MG, 1 IN 1 D), ORAL
     Route: 048
     Dates: start: 20040501
  2. CLINDAMYCIN PHOSPHATE [Suspect]
     Indication: OPEN WOUND
     Dosage: TOPICAL
     Route: 061

REACTIONS (11)
  - ACNE [None]
  - ACTINIC KERATOSIS [None]
  - ANGIOPATHY [None]
  - FOLLICULITIS [None]
  - FUNGAL INFECTION [None]
  - IMPAIRED HEALING [None]
  - OPEN WOUND [None]
  - SCAB [None]
  - SKIN DISORDER [None]
  - STRABISMUS [None]
  - WEIGHT INCREASED [None]
